FAERS Safety Report 7503967-8 (Version None)
Quarter: 2011Q2

REPORT INFORMATION
  Report Type: 
  Country: None (occurrence: None)
  Receive Date: 20110525
  Receipt Date: 20110519
  Transmission Date: 20111010
  Serious: Yes (Other)
  Sender: FDA-Public Use
  Company Number: GB-PFIZER INC-2011108951

PATIENT
  Age: 55 Year
  Sex: Male

DRUGS (2)
  1. FENOFIBRATE [Interacting]
     Indication: TYPE III HYPERLIPIDAEMIA
     Dosage: 267 MG, UNK
  2. ATORVASTATIN CALCIUM [Suspect]
     Indication: TYPE III HYPERLIPIDAEMIA
     Dosage: 40 MG, UNK

REACTIONS (2)
  - DRUG INTERACTION [None]
  - HIGH DENSITY LIPOPROTEIN DECREASED [None]
